FAERS Safety Report 17228924 (Version 2)
Quarter: 2020Q1

REPORT INFORMATION
  Report Type: Spontaneous
  Country: US (occurrence: US)
  Receive Date: 20200103
  Receipt Date: 20200218
  Transmission Date: 20200409
  Serious: Yes (Hospitalization, Other)
  Sender: FDA-Public Use
  Company Number: US-BAYER-2019-237835

PATIENT
  Age: 77 Year
  Sex: Female
  Weight: 130 kg

DRUGS (22)
  1. SOMA COMPLEX [Concomitant]
  2. LANSOPRAZOLE. [Concomitant]
     Active Substance: LANSOPRAZOLE
  3. CLARITIN-D 12 HOUR [Suspect]
     Active Substance: LORATADINE\PSEUDOEPHEDRINE SULFATE
  4. NITROGLYCERINE [Concomitant]
     Active Substance: NITROGLYCERIN
  5. VITAMIN D3 [Concomitant]
     Active Substance: CHOLECALCIFEROL
  6. METOPROLOL. [Concomitant]
     Active Substance: METOPROLOL
  7. PREDNISONE. [Concomitant]
     Active Substance: PREDNISONE
  8. REFRESH [POVIDONE] [Concomitant]
  9. RISDONE [Concomitant]
     Active Substance: RISPERIDONE
  10. HUMIRA [Suspect]
     Active Substance: ADALIMUMAB
     Dosage: 40 MG
     Route: 058
     Dates: start: 201509, end: 2019
  11. CALCIUM [Concomitant]
     Active Substance: CALCIUM
  12. VITAMIN B12 [Concomitant]
     Active Substance: CYANOCOBALAMIN
  13. IRON [Concomitant]
     Active Substance: IRON
  14. SYNTHROID [Suspect]
     Active Substance: LEVOTHYROXINE SODIUM
     Dosage: UNK
     Route: 048
     Dates: start: 2014
  15. TEMAZEPAM. [Concomitant]
     Active Substance: TEMAZEPAM
  16. LEVOTHYROXINE. [Concomitant]
     Active Substance: LEVOTHYROXINE
  17. FOLIC ACID. [Concomitant]
     Active Substance: FOLIC ACID
  18. REFRESH REPAIR [Concomitant]
     Active Substance: CARBOXYMETHYLCELLULOSE SODIUM\GLYCERIN
  19. PENTASA [Concomitant]
     Active Substance: MESALAMINE
  20. CALCIUM WITH D3 [Concomitant]
  21. METHOTREXATE. [Concomitant]
     Active Substance: METHOTREXATE
  22. MAGNESIUM [Concomitant]
     Active Substance: MAGNESIUM

REACTIONS (21)
  - Impaired healing [Recovered/Resolved]
  - Tooth fracture [Recovered/Resolved]
  - Malignant neoplasm of eyelid [Not Recovered/Not Resolved]
  - Muscle spasms [Unknown]
  - Weight decreased [Not Recovered/Not Resolved]
  - Mucous stools [Unknown]
  - Insomnia [Not Recovered/Not Resolved]
  - Arthritis [Unknown]
  - Hepatic cirrhosis [Unknown]
  - Basal cell carcinoma [Recovered/Resolved]
  - Pain in extremity [Unknown]
  - Sinusitis [Not Recovered/Not Resolved]
  - Hepatic steatosis [Not Recovered/Not Resolved]
  - Headache [Not Recovered/Not Resolved]
  - Off label use [None]
  - Abdominal pain [Unknown]
  - Scleritis [Not Recovered/Not Resolved]
  - Abnormal faeces [Not Recovered/Not Resolved]
  - Eye pruritus [Not Recovered/Not Resolved]
  - Diarrhoea [Recovered/Resolved]
  - Pneumonia [Recovered/Resolved]

NARRATIVE: CASE EVENT DATE: 2017
